FAERS Safety Report 8436999-6 (Version None)
Quarter: 2012Q2

REPORT INFORMATION
  Report Type: 
  Country: None (occurrence: None)
  Receive Date: 20120614
  Receipt Date: 20120413
  Transmission Date: 20120825
  Serious: No
  Sender: FDA-Public Use
  Company Number: US-AMGEN-USASP2012024019

PATIENT
  Age: 77 Year
  Sex: Female

DRUGS (2)
  1. ARANESP [Suspect]
     Indication: PRODUCT USED FOR UNKNOWN INDICATION
     Dosage: 60 MUG, UNK
  2. ARANESP [Suspect]
     Dosage: 100 MUG, UNK

REACTIONS (3)
  - HAEMOGLOBIN DECREASED [None]
  - ASTHENIA [None]
  - HAEMORRHAGE [None]
